FAERS Safety Report 22382860 (Version 2)
Quarter: 2024Q3

REPORT INFORMATION
  Report Type: Spontaneous
  Country: HU (occurrence: HU)
  Receive Date: 20230530
  Receipt Date: 20240925
  Transmission Date: 20241017
  Serious: Yes (Hospitalization)
  Sender: JUBILANT
  Company Number: None

PATIENT
  Age: 84 Year
  Sex: Female

DRUGS (3)
  1. AMLODIPINE AND OLMESARTAN MEDOXOMIL [Suspect]
     Active Substance: AMLODIPINE BESYLATE\OLMESARTAN MEDOXOMIL
     Dosage: UNK,  UNK (THE EVENING DOSE WAS REDUCED)
     Route: 048
  2. BISOPROLOL FUMARATE [Suspect]
     Active Substance: BISOPROLOL FUMARATE
     Indication: Hypertension
     Dosage: UNK,  UNK
  3. CARVEDILOL [Suspect]
     Active Substance: CARVEDILOL
     Indication: Hypertension
     Dosage: 25 MG, ONCE PER DAY (12.5 MG, 2X/DAY)
     Route: 048

REACTIONS (8)
  - Heart rate increased [Unknown]
  - Blood glucose increased [Unknown]
  - Systolic hypertension [Recovering/Resolving]
  - Angina unstable [Recovered/Resolved]
  - Oedema peripheral [Recovered/Resolved]
  - Paraesthesia [Recovered/Resolved]
  - Peripheral coldness [Recovered/Resolved]
  - Therapeutic product effect incomplete [Unknown]

NARRATIVE: CASE EVENT DATE: 20180101
